FAERS Safety Report 25962934 (Version 1)
Quarter: 2025Q4

REPORT INFORMATION
  Report Type: Spontaneous
  Country: EU (occurrence: EU)
  Receive Date: 20251027
  Receipt Date: 20251027
  Transmission Date: 20260117
  Serious: Yes (Other)
  Sender: ABBVIE
  Company Number: EU-ABBVIE-6515227

PATIENT
  Sex: Male
  Weight: 81 kg

DRUGS (3)
  1. RINVOQ [Suspect]
     Active Substance: UPADACITINIB
     Indication: Colitis ulcerative
     Dosage: 30  (UNITS NOT PROVIDED)
     Route: 048
     Dates: start: 20241231, end: 20250829
  2. RINVOQ [Suspect]
     Active Substance: UPADACITINIB
     Indication: Colitis ulcerative
     Dosage: 30  (UNITS NOT PROVIDED)
     Route: 048
     Dates: start: 2025, end: 20250924
  3. PENTASA [Concomitant]
     Active Substance: MESALAMINE
     Indication: Colitis ulcerative
     Dosage: 8 GRAM
     Route: 048
     Dates: start: 2019

REACTIONS (5)
  - Cytomegalovirus myocarditis [Recovering/Resolving]
  - Cytomegalovirus infection [Recovering/Resolving]
  - Chest pain [Recovering/Resolving]
  - Dyspnoea [Recovering/Resolving]
  - Varicella zoster virus infection [Recovering/Resolving]

NARRATIVE: CASE EVENT DATE: 20250101
